FAERS Safety Report 18797076 (Version 3)
Quarter: 2024Q2

REPORT INFORMATION
  Report Type: Other
  Country: VN (occurrence: None)
  Receive Date: 20210128
  Receipt Date: 20240524
  Transmission Date: 20240716
  Serious: Yes (Death, Other)
  Sender: FDA-Public Use
  Company Number: VN-ROCHE-2757050

PATIENT

DRUGS (2)
  1. MYCOPHENOLATE MOFETIL [Suspect]
     Active Substance: MYCOPHENOLATE MOFETIL
     Indication: Prophylaxis against graft versus host disease
     Route: 065
  2. TACROLIMUS [Suspect]
     Active Substance: TACROLIMUS
     Indication: Prophylaxis against graft versus host disease
     Route: 065

REACTIONS (9)
  - Bacterial infection [Fatal]
  - Fungal infection [Fatal]
  - Off label use [Fatal]
  - Off label use [Fatal]
  - Cytomegalovirus infection reactivation [Unknown]
  - Clostridium difficile infection [Unknown]
  - BK virus infection [Unknown]
  - Candida infection [Unknown]
  - Haematological infection [Unknown]
